FAERS Safety Report 21376586 (Version 2)
Quarter: 2023Q2

REPORT INFORMATION
  Report Type: Report from Study
  Country: PR (occurrence: PR)
  Receive Date: 20220926
  Receipt Date: 20230416
  Transmission Date: 20230721
  Serious: Yes (Death, Hospitalization, Other)
  Sender: FDA-Public Use
  Company Number: PR-ABBVIE-4129246

PATIENT
  Age: 74 Year
  Sex: Female

DRUGS (2)
  1. HUMIRA [Suspect]
     Active Substance: ADALIMUMAB
     Indication: Crohn^s disease
     Dosage: STRENGTH-40 MG
     Route: 058
     Dates: start: 20080516, end: 202207
  2. HUMIRA [Suspect]
     Active Substance: ADALIMUMAB

REACTIONS (11)
  - Unresponsive to stimuli [Fatal]
  - Haemoglobin decreased [Unknown]
  - Peripheral vascular disorder [Recovering/Resolving]
  - Gastrointestinal disorder [Unknown]
  - Asthenia [Recovered/Resolved]
  - Unevaluable event [Fatal]
  - Vomiting [Recovering/Resolving]
  - Oedema peripheral [Recovering/Resolving]
  - Vomiting [Recovered/Resolved]
  - Vomiting [Recovered/Resolved]
  - Asthenia [Recovering/Resolving]

NARRATIVE: CASE EVENT DATE: 20220801
